FAERS Safety Report 13967958 (Version 2)
Quarter: 2017Q4

REPORT INFORMATION
  Report Type: Spontaneous
  Country: GB (occurrence: GB)
  Receive Date: 20170914
  Receipt Date: 20171009
  Transmission Date: 20180320
  Serious: Yes (Hospitalization)
  Sender: FDA-Public Use
  Company Number: GB-DEXPHARM-20171259

PATIENT
  Age: 89 Year
  Sex: Female

DRUGS (3)
  1. ISOSORBIDE MONONITRATE. [Suspect]
     Active Substance: ISOSORBIDE MONONITRATE
     Dosage: MORNING
     Dates: start: 20170720
  2. GTN [Suspect]
     Active Substance: NITROGLYCERIN
     Route: 060
     Dates: start: 20170719
  3. ISOSORBIDE MONONITRATE. [Suspect]
     Active Substance: ISOSORBIDE MONONITRATE
     Dates: start: 20170719

REACTIONS (3)
  - Drug interaction [Unknown]
  - Hypotension [Unknown]
  - Circulatory collapse [Unknown]
